FAERS Safety Report 4895414-X (Version None)
Quarter: 2006Q1

REPORT INFORMATION
  Report Type: 
  Country: None (occurrence: None)
  Receive Date: 20060130
  Receipt Date: 20050810
  Transmission Date: 20060701
  Serious: No
  Sender: FDA-Public Use
  Company Number: US-GLAXOSMITHKLINE-A0569694A

PATIENT
  Age: 34 Year
  Sex: Male

DRUGS (3)
  1. COMBIVIR [Suspect]
     Indication: HIV INFECTION
     Dosage: 1TAB TWICE PER DAY
     Route: 048
     Dates: start: 20050601
  2. SUSTIVA [Suspect]
     Indication: HIV INFECTION
     Route: 065
     Dates: start: 20050601
  3. LEXIVA [Concomitant]

REACTIONS (2)
  - RASH ERYTHEMATOUS [None]
  - RASH MACULO-PAPULAR [None]
